FAERS Safety Report 20132500 (Version 2)
Quarter: 2022Q2

REPORT INFORMATION
  Report Type: Spontaneous
  Country: US (occurrence: US)
  Receive Date: 20211130
  Receipt Date: 20220520
  Transmission Date: 20220721
  Serious: Yes (Other)
  Sender: FDA-Public Use
  Company Number: US-GILEAD-2021-0557207

PATIENT
  Sex: Male

DRUGS (28)
  1. TRUVADA [Suspect]
     Active Substance: EMTRICITABINE\TENOFOVIR DISOPROXIL FUMARATE
     Indication: HIV infection
     Dosage: UNK
     Route: 048
     Dates: start: 2013
  2. TRUVADA [Suspect]
     Active Substance: EMTRICITABINE\TENOFOVIR DISOPROXIL FUMARATE
     Dosage: UNK
     Route: 048
     Dates: start: 201501, end: 202010
  3. STRIBILD [Suspect]
     Active Substance: COBICISTAT\ELVITEGRAVIR\EMTRICITABINE\TENOFOVIR DISOPROXIL FUMARATE
     Indication: HIV infection
     Dosage: UNK
     Route: 048
     Dates: start: 2013, end: 201412
  4. DESCOVY [Concomitant]
     Active Substance: EMTRICITABINE\TENOFOVIR ALAFENAMIDE FUMARATE
  5. NORVIR [Concomitant]
     Active Substance: RITONAVIR
  6. PREZISTA [Concomitant]
     Active Substance: DARUNAVIR ETHANOLATE
  7. SYMTUZA [Concomitant]
     Active Substance: COBICISTAT\DARUNAVIR\EMTRICITABINE\TENOFOVIR ALAFENAMIDE
  8. DAPSONE [Concomitant]
     Active Substance: DAPSONE
     Dosage: UNK
  9. CLINDAMYCIN [Concomitant]
     Active Substance: CLINDAMYCIN
     Dosage: UNK
  10. JARDIANCE [Concomitant]
     Active Substance: EMPAGLIFLOZIN
     Dosage: UNK
  11. INSULIN NOS [Concomitant]
     Active Substance: INSULIN NOS
     Dosage: UNK
  12. ATORVASTATIN [Concomitant]
     Active Substance: ATORVASTATIN
     Dosage: UNK
  13. OMEPRAZOLE [Concomitant]
     Active Substance: OMEPRAZOLE
     Dosage: UNK
  14. VALACYCLOVIR [Concomitant]
     Active Substance: VALACYCLOVIR HYDROCHLORIDE
     Dosage: UNK
  15. TETRACYCLINE [Concomitant]
     Active Substance: TETRACYCLINE
     Dosage: UNK
  16. SYNJARDY [Concomitant]
     Active Substance: EMPAGLIFLOZIN\METFORMIN HYDROCHLORIDE
     Dosage: UNK
  17. BISMUTH [Concomitant]
     Active Substance: BISMUTH
     Dosage: UNK
  18. METFORMIN [Concomitant]
     Active Substance: METFORMIN HYDROCHLORIDE
     Dosage: UNK
  19. METOPROLOL [Concomitant]
     Active Substance: METOPROLOL
     Dosage: UNK
  20. COLCHICINE [Concomitant]
     Active Substance: COLCHICINE
     Dosage: UNK
  21. ALPRAZOLAM [Concomitant]
     Active Substance: ALPRAZOLAM
     Dosage: UNK
  22. BUPROPION [Concomitant]
     Active Substance: BUPROPION
     Dosage: UNK
  23. CHLORTHALIDONE [Concomitant]
     Active Substance: CHLORTHALIDONE
     Dosage: UNK
  24. ROSUVASTATIN [Concomitant]
     Active Substance: ROSUVASTATIN
     Dosage: UNK
  25. LOSARTAN [Concomitant]
     Active Substance: LOSARTAN
     Dosage: UNK
  26. FENOFIBRATE [Concomitant]
     Active Substance: FENOFIBRATE
     Dosage: UNK
  27. DIETARY SUPPLEMENT\HERBALS [Concomitant]
     Active Substance: DIETARY SUPPLEMENT\HERBALS
     Dosage: UNK
  28. DIETARY SUPPLEMENT\HERBALS [Concomitant]
     Active Substance: DIETARY SUPPLEMENT\HERBALS
     Dosage: UNK

REACTIONS (6)
  - Osteoporosis [Not Recovered/Not Resolved]
  - Bone demineralisation [Unknown]
  - Anxiety [Not Recovered/Not Resolved]
  - Emotional distress [Not Recovered/Not Resolved]
  - Pain [Not Recovered/Not Resolved]
  - Anhedonia [Not Recovered/Not Resolved]

NARRATIVE: CASE EVENT DATE: 20160101
